FAERS Safety Report 6546866-0 (Version None)
Quarter: 2010Q1

REPORT INFORMATION
  Report Type: 
  Country: None (occurrence: None)
  Receive Date: 20100114
  Receipt Date: 20091021
  Transmission Date: 20100710
  Serious: No
  Sender: FDA-Public Use
  Company Number: 2009BM000273

PATIENT
  Age: 3 Year
  Sex: Female
  Weight: 20.4119 kg

DRUGS (2)
  1. KUVAN [Suspect]
     Indication: PHENYLKETONURIA
     Dosage: 300 MG;QD;PO
     Route: 048
     Dates: start: 20090201
  2. PREDISONE (5 ML) [Suspect]
     Dosage: 5 ML;BID;PO
     Route: 048
     Dates: start: 20090501

REACTIONS (1)
  - AMINO ACID LEVEL INCREASED [None]
